FAERS Safety Report 9412270 (Version 4)
Quarter: 2013Q4

REPORT INFORMATION
  Report Type: Spontaneous
  Country: JP (occurrence: JP)
  Receive Date: 20130722
  Receipt Date: 20131016
  Transmission Date: 20140711
  Serious: Yes (Hospitalization)
  Sender: FDA-Public Use
  Company Number: JP-VERTEX PHARMACEUTICALS INC-2013-008148

PATIENT
  Age: 69 Year
  Sex: Male

DRUGS (10)
  1. TELAVIC [Suspect]
     Indication: CHRONIC HEPATITIS C
     Dosage: 1500 MG, QD
     Route: 048
     Dates: start: 20130618, end: 20130716
  2. PEGINTRON [Concomitant]
     Indication: CHRONIC HEPATITIS C
     Dosage: 1.5 ?G/KG, QW
     Route: 058
     Dates: start: 20130618, end: 20130716
  3. PEGINTRON [Concomitant]
     Dosage: UNK
  4. REBETOL [Concomitant]
     Indication: CHRONIC HEPATITIS C
     Dosage: 600 MG, UNK
     Route: 048
     Dates: start: 20130618, end: 20130716
  5. NESINA [Concomitant]
     Dosage: 25 MG, UNK
     Route: 048
  6. MICARDIS [Concomitant]
     Dosage: 40 MG, UNK
     Route: 048
  7. NORVASC [Concomitant]
     Dosage: 5 MG, UNK
     Route: 048
  8. GASTER [Concomitant]
     Dosage: 20 MG, UNK
     Route: 048
  9. LANTUS [Concomitant]
     Dosage: UNK
     Route: 058
     Dates: start: 20130705
  10. ACTOS [Concomitant]
     Dosage: 15 MG, UNK
     Route: 048

REACTIONS (1)
  - Adrenal insufficiency [Recovered/Resolved]
